FAERS Safety Report 19749259 (Version 2)
Quarter: 2021Q3

REPORT INFORMATION
  Report Type: Spontaneous
  Country: BR (occurrence: BR)
  Receive Date: 20210826
  Receipt Date: 20210901
  Transmission Date: 20211014
  Serious: Yes (Other)
  Sender: FDA-Public Use
  Company Number: BR-TEVA-2021-BR-1945628

PATIENT
  Age: 78 Year
  Sex: Female
  Weight: 69 kg

DRUGS (11)
  1. GLIFAGE [Concomitant]
     Active Substance: METFORMIN HYDROCHLORIDE
  2. SIMVASTATIN. [Concomitant]
     Active Substance: SIMVASTATIN
  3. FAULDLEUCO [Concomitant]
     Active Substance: LEUCOVORIN CALCIUM
     Dosage: CONCOMITANT INFUSION OF TEVAOXALI AND FAULDLEUCO
  4. LOSARTAN. [Concomitant]
     Active Substance: LOSARTAN
  5. OMEPRAZOLE. [Concomitant]
     Active Substance: OMEPRAZOLE
  6. TEVAOXALI [Suspect]
     Active Substance: OXALIPLATIN
     Dosage: FIRST CYCLE ON 07?JUL?2021, EACH CYCLE IS PERFORMED EVERY 15 DAYS, ADVERSE REACTION ON 4TH CYCLE
     Route: 042
  7. CLOPIDOGREL [Concomitant]
     Active Substance: CLOPIDOGREL BISULFATE
  8. TEVAOXALI [Suspect]
     Active Substance: OXALIPLATIN
     Dosage: FIRST CYCLE ON 07?JUL?2021, EACH CYCLE IS PERFORMED EVERY 15 DAYS, ADVERSE REACTION ON 4TH CYCLE
     Route: 042
  9. FAULDFLUOR [Concomitant]
     Active Substance: FLUOROURACIL
  10. AMLODIPINE [Concomitant]
     Active Substance: AMLODIPINE BESYLATE
  11. CARVEDILOL. [Concomitant]
     Active Substance: CARVEDILOL

REACTIONS (2)
  - Hypertensive crisis [Recovered/Resolved]
  - Bronchospasm [Recovered/Resolved]

NARRATIVE: CASE EVENT DATE: 20210818
